FAERS Safety Report 5878998-4 (Version None)
Quarter: 2008Q3

REPORT INFORMATION
  Report Type: 
  Country: None (occurrence: None)
  Receive Date: 20080912
  Receipt Date: 20080902
  Transmission Date: 20090109
  Serious: Yes (Death)
  Sender: FDA-Public Use
  Company Number: JP-ABBOTT-08P-087-0475405-00

PATIENT
  Age: 69 Year
  Sex: Male

DRUGS (7)
  1. LEUPROLIDE ACETATE [Suspect]
     Indication: PROSTATE CANCER STAGE IV
     Route: 058
     Dates: start: 20060523, end: 20070821
  2. TICLOPIDINE HYDROCHLORIDE [Suspect]
     Indication: MYOCARDIAL INFARCTION
     Route: 048
     Dates: end: 20070901
  3. ACETYLSALICYLIC ACID SRT [Suspect]
     Indication: MYOCARDIAL INFARCTION
     Route: 048
     Dates: end: 20070901
  4. WARFARIN SODIUM [Suspect]
     Indication: MYOCARDIAL INFARCTION
     Route: 048
     Dates: end: 20070901
  5. LANSOPRAZOLE [Concomitant]
     Indication: GASTRIC ULCER
     Route: 048
     Dates: end: 20070901
  6. CHLORMADINONE ACETATE TAB [Concomitant]
     Indication: PROSTATE CANCER STAGE IV
     Route: 048
     Dates: start: 20060509, end: 20060530
  7. SARPOGRELATE HYDROCHLORIDE [Concomitant]
     Indication: ARTERIOSCLEROSIS OBLITERANS
     Route: 048
     Dates: end: 20070901

REACTIONS (1)
  - SUBDURAL HAEMATOMA [None]
